FAERS Safety Report 23987464 (Version 1)
Quarter: 2024Q2

REPORT INFORMATION
  Report Type: Spontaneous
  Country: DE (occurrence: DE)
  Receive Date: 20240618
  Receipt Date: 20240618
  Transmission Date: 20240715
  Serious: Yes (Other)
  Sender: FDA-Public Use
  Company Number: None

PATIENT
  Age: 80 Year
  Sex: Female
  Weight: 62 kg

DRUGS (2)
  1. IBUPROFEN [Suspect]
     Active Substance: IBUPROFEN
     Indication: Product used for unknown indication
     Route: 065
     Dates: start: 20191001
  2. DICLOFENAC SODIUM [Suspect]
     Active Substance: DICLOFENAC\DICLOFENAC SODIUM
     Indication: Product used for unknown indication
     Dosage: TIME INTERVAL: TOTAL
     Route: 065
     Dates: start: 201809

REACTIONS (2)
  - Gastric haemorrhage [Unknown]
  - Gastric haemorrhage [Unknown]

NARRATIVE: CASE EVENT DATE: 20180901
